FAERS Safety Report 6577731-0 (Version None)
Quarter: 2010Q1

REPORT INFORMATION
  Report Type: 
  Country: None (occurrence: None)
  Receive Date: 20100211
  Receipt Date: 20100202
  Transmission Date: 20100710
  Serious: Yes (Death)
  Sender: FDA-Public Use
  Company Number: CN-BAYER-201014397GPV

PATIENT
  Age: 81 Year
  Sex: Female

DRUGS (1)
  1. ULTRAVIST 370 [Suspect]
     Indication: ANGIOGRAM PERIPHERAL
     Dosage: TOTAL DAILY DOSE: 100 ML
     Route: 042
     Dates: start: 20100127, end: 20100127

REACTIONS (5)
  - DYSPNOEA [None]
  - EYELID OEDEMA [None]
  - MALAISE [None]
  - MYDRIASIS [None]
  - PERIPHERAL COLDNESS [None]
